FAERS Safety Report 12856213 (Version 1)
Quarter: 2016Q4

REPORT INFORMATION
  Report Type: Spontaneous
  Country: ZA (occurrence: ZA)
  Receive Date: 20161018
  Receipt Date: 20161018
  Transmission Date: 20170207
  Serious: Yes (Other)
  Sender: FDA-Public Use
  Company Number: ZA-CIPLA LTD.-2016ZA19325

PATIENT

DRUGS (1)
  1. ZIDOVUDINE. [Suspect]
     Active Substance: ZIDOVUDINE
     Indication: HIV INFECTION
     Dosage: UNK
     Route: 065

REACTIONS (1)
  - Treatment failure [Unknown]
